FAERS Safety Report 5636853-9 (Version None)
Quarter: 2008Q1

REPORT INFORMATION
  Report Type: 
  Country: None (occurrence: None)
  Receive Date: 20080219
  Receipt Date: 20080204
  Transmission Date: 20080703
  Serious: Yes (Death)
  Sender: FDA-Public Use
  Company Number: B0507270A

PATIENT
  Age: 28 Year
  Sex: Female

DRUGS (1)
  1. CHLORPROMAZINE HYDROCHLORIDE [Suspect]
     Indication: SCHIZOPHRENIA
     Dosage: 750 MG / PER DAY / ORAL
     Route: 048

REACTIONS (15)
  - BEREAVEMENT REACTION [None]
  - CAESAREAN SECTION [None]
  - COGWHEEL RIGIDITY [None]
  - COMPLETED SUICIDE [None]
  - CONVULSION [None]
  - DELUSION [None]
  - DRUG EXPOSURE DURING PREGNANCY [None]
  - HALLUCINATION, AUDITORY [None]
  - LOSS OF EMPLOYMENT [None]
  - ORTHOSTATIC HYPOTENSION [None]
  - POSTPARTUM DEPRESSION [None]
  - PREGNANCY [None]
  - SALIVARY HYPERSECRETION [None]
  - SOMNOLENCE [None]
  - SYNCOPE [None]
